FAERS Safety Report 7632148-2 (Version None)
Quarter: 2011Q3

REPORT INFORMATION
  Report Type: 
  Country: None (occurrence: None)
  Receive Date: 20110725
  Receipt Date: 20110725
  Transmission Date: 20111222
  Serious: Yes (Disabling, Other)
  Sender: FDA-Public Use
  Company Number: None

PATIENT
  Age: 67 Year
  Sex: Male
  Weight: 52.163 kg

DRUGS (1)
  1. FLOVENT HFA [Suspect]
     Indication: LUNG DISORDER
     Dosage: 1-2 PUFFS
     Route: 048

REACTIONS (3)
  - SWOLLEN TONGUE [None]
  - CANDIDIASIS [None]
  - TONGUE BLISTERING [None]
